FAERS Safety Report 24684282 (Version 1)
Quarter: 2024Q4

REPORT INFORMATION
  Report Type: Report from Study
  Country: US (occurrence: US)
  Receive Date: 20241202
  Receipt Date: 20241202
  Transmission Date: 20250114
  Serious: Yes (Hospitalization, Other)
  Sender: ROCHE
  Company Number: US-ROCHE-10000141059

PATIENT
  Age: 33 Year
  Sex: Female

DRUGS (1)
  1. OCREVUS [Suspect]
     Active Substance: OCRELIZUMAB
     Indication: Multiple sclerosis
     Dosage: 2-HOUR INFUSION
     Route: 065

REACTIONS (4)
  - Immunodeficiency [Unknown]
  - Herpes zoster [Unknown]
  - Herpes zoster meningitis [Unknown]
  - Multiple sclerosis [Unknown]
